FAERS Safety Report 6187534-7 (Version None)
Quarter: 2009Q2

REPORT INFORMATION
  Report Type: 
  Country: None (occurrence: None)
  Receive Date: 20090512
  Receipt Date: 20090427
  Transmission Date: 20091009
  Serious: Yes (Death)
  Sender: FDA-Public Use
  Company Number: JP-JNJFOC-20090405183

PATIENT
  Age: 2 Year
  Sex: Female

DRUGS (3)
  1. ITRIZOLE [Interacting]
     Indication: INFECTION PROPHYLAXIS
     Dosage: 0.5 ML/KG TWICE DAILY (MAXIMUM OF 20 ML/DAY)
     Route: 048
  2. L-ASPARAGINASE [Suspect]
     Indication: NEOPLASM MALIGNANT
     Route: 042
  3. VINCRISTINE SULFATE [Interacting]
     Indication: NEOPLASM MALIGNANT
     Route: 041

REACTIONS (2)
  - DRUG INTERACTION [None]
  - HEPATIC STEATOSIS [None]
